FAERS Safety Report 5363812-6 (Version None)
Quarter: 2007Q2

REPORT INFORMATION
  Report Type: 
  Country: None (occurrence: None)
  Receive Date: 20070620
  Receipt Date: 20070619
  Transmission Date: 20071010
  Serious: Yes (Death, Hospitalization)
  Sender: FDA-Public Use
  Company Number: US-BRISTOL-MYERS SQUIBB COMPANY-13581715

PATIENT
  Age: 72 Year
  Sex: Male

DRUGS (8)
  1. ERBITUX [Suspect]
     Indication: NON-SMALL CELL LUNG CANCER
     Route: 042
     Dates: start: 20061106, end: 20061106
  2. CARBOPLATIN [Suspect]
     Indication: NON-SMALL CELL LUNG CANCER
     Route: 042
     Dates: start: 20061020, end: 20061020
  3. TAXOL [Suspect]
     Indication: NON-SMALL CELL LUNG CANCER
     Route: 042
     Dates: start: 20061113, end: 20061113
  4. PREDNISONE TAB [Concomitant]
     Dates: start: 20060724
  5. SINGULAIR [Concomitant]
     Dates: start: 20060724
  6. NORCO [Concomitant]
     Dates: start: 20060808
  7. FELODIPINE [Concomitant]
     Dates: start: 20060101
  8. ZOCOR [Concomitant]
     Dates: start: 20060101

REACTIONS (3)
  - MALIGNANT NEOPLASM PROGRESSION [None]
  - RENAL FAILURE [None]
  - RESPIRATORY FAILURE [None]
